FAERS Safety Report 14299945 (Version 2)
Quarter: 2018Q1

REPORT INFORMATION
  Report Type: Spontaneous
  Country: US (occurrence: US)
  Receive Date: 20171219
  Receipt Date: 20180202
  Transmission Date: 20180509
  Serious: Yes (Hospitalization)
  Sender: FDA-Public Use
  Company Number: US-BIOGEN-2015BI016421

PATIENT
  Age: 44 Year
  Sex: Female
  Weight: 142.43 kg

DRUGS (2)
  1. AVONEX [Suspect]
     Active Substance: INTERFERON BETA-1A
     Indication: MULTIPLE SCLEROSIS
     Route: 030
     Dates: start: 20100520
  2. AVONEX [Suspect]
     Active Substance: INTERFERON BETA-1A
     Route: 065
     Dates: start: 2012, end: 2016

REACTIONS (7)
  - Meniscus injury [Unknown]
  - Pneumonia [Unknown]
  - Temperature intolerance [Unknown]
  - Extrasystoles [Unknown]
  - Pain in extremity [Unknown]
  - Tachycardia [Unknown]
  - Pleurisy [Unknown]

NARRATIVE: CASE EVENT DATE: 20150101
